FAERS Safety Report 4566698-2 (Version None)
Quarter: 2005Q1

REPORT INFORMATION
  Report Type: 
  Country: None (occurrence: None)
  Receive Date: 20050201
  Receipt Date: 20050125
  Transmission Date: 20050727
  Serious: Yes (Hospitalization)
  Sender: FDA-Public Use
  Company Number: PHBS2005HR01494

PATIENT
  Age: 21 Year
  Sex: Female

DRUGS (5)
  1. EGLONYL [Concomitant]
     Dosage: 200 MG/D
     Route: 065
  2. ANAFRANIL [Concomitant]
     Dosage: 25 MG/D
     Route: 065
  3. APAURIN [Concomitant]
     Dosage: 10 MG/D
     Route: 065
  4. AKINETON [Concomitant]
     Route: 065
  5. LEPONEX [Suspect]
     Indication: MAJOR DEPRESSION
     Dosage: 25 MG/D
     Route: 048
     Dates: start: 20040816, end: 20040828

REACTIONS (4)
  - ABNORMAL BEHAVIOUR [None]
  - AMIMIA [None]
  - MENTAL IMPAIRMENT [None]
  - PSYCHIATRIC SYMPTOM [None]
